FAERS Safety Report 10027733 (Version 1)
Quarter: 2014Q1

REPORT INFORMATION
  Report Type: Spontaneous
  Country: US (occurrence: US)
  Receive Date: 20140321
  Receipt Date: 20140321
  Transmission Date: 20141002
  Serious: No
  Sender: FDA-Public Use
  Company Number: US-MALLINCKRODT-T201302466

PATIENT
  Sex: Male

DRUGS (4)
  1. METHADOSE [Suspect]
     Indication: PAIN
     Dosage: DIFFERENT DOSES OVER 3-4 YRS
     Route: 048
     Dates: start: 2007, end: 2010
  2. GABAPENTIN [Concomitant]
     Indication: NEURALGIA
     Dosage: 400 MG TABLETS, 8/QD
     Route: 048
  3. DILAUDID [Concomitant]
     Indication: PAIN
     Dosage: 4 MG TABLETS, 6/QD
     Route: 048
     Dates: start: 2005, end: 2007
  4. DILAUDID [Concomitant]
     Dosage: UNK
     Dates: start: 2010

REACTIONS (3)
  - Abnormal behaviour [Recovered/Resolved]
  - Memory impairment [Recovered/Resolved]
  - Drug effect decreased [Recovered/Resolved]
